FAERS Safety Report 19070203 (Version 6)
Quarter: 2021Q3

REPORT INFORMATION
  Report Type: Report from Study
  Country: US (occurrence: US)
  Receive Date: 20210329
  Receipt Date: 20210911
  Transmission Date: 20211014
  Serious: Yes (Hospitalization, Other)
  Sender: FDA-Public Use
  Company Number: NVSC2021US068102

PATIENT
  Age: 52 Year
  Sex: Female

DRUGS (1)
  1. ENTRESTO [Suspect]
     Active Substance: SACUBITRIL\VALSARTAN
     Indication: PRODUCT USED FOR UNKNOWN INDICATION
     Dosage: UNK UNK, BID
     Route: 048
     Dates: start: 202102

REACTIONS (8)
  - Infection [Unknown]
  - Peripheral artery thrombosis [Unknown]
  - Wound [Unknown]
  - Mitral valve disease [Unknown]
  - Dyspnoea [Unknown]
  - Deep vein thrombosis [Recovering/Resolving]
  - Product dose omission issue [Unknown]
  - Haematoma [Unknown]

NARRATIVE: CASE EVENT DATE: 20210627
